FAERS Safety Report 4385546-7 (Version None)
Quarter: 2004Q2

REPORT INFORMATION
  Report Type: 
  Country: None (occurrence: None)
  Receive Date: 20040622
  Receipt Date: 20040511
  Transmission Date: 20050107
  Serious: Yes (Death)
  Sender: FDA-Public Use
  Company Number: A04200400501

PATIENT
  Age: 80 Year
  Sex: Male

DRUGS (3)
  1. PLAVIX [Suspect]
     Indication: ATRIAL FIBRILLATION
     Dosage: 75 MG OD, ORAL
     Route: 048
  2. PLAVIX [Suspect]
     Indication: CEREBROVASCULAR ACCIDENT
     Dosage: 75 MG OD, ORAL
     Route: 048
  3. PLAVIX [Suspect]
     Indication: TRANSIENT ISCHAEMIC ATTACK
     Dosage: 75 MG OD, ORAL
     Route: 048

REACTIONS (2)
  - ACUTE MYELOID LEUKAEMIA [None]
  - THROMBOTIC THROMBOCYTOPENIC PURPURA [None]
